FAERS Safety Report 5880380-0 (Version None)
Quarter: 2008Q3

REPORT INFORMATION
  Report Type: 
  Country: None (occurrence: None)
  Receive Date: 20080912
  Receipt Date: 20080611
  Transmission Date: 20090109
  Serious: No
  Sender: FDA-Public Use
  Company Number: PR-ABBOTT-08P-131-0457710-00

PATIENT
  Sex: Female
  Weight: 63.56 kg

DRUGS (6)
  1. HUMIRA [Suspect]
     Indication: PSORIASIS
     Route: 058
     Dates: start: 20080401
  2. ESOMEPRAZOLE MAGNESIUM [Concomitant]
     Indication: GASTROOESOPHAGEAL REFLUX DISEASE
     Route: 048
  3. LEVOTHYROXINE SODIUM [Concomitant]
     Indication: THYROIDECTOMY
     Route: 048
  4. IRBESARTAN [Concomitant]
     Indication: HYPERTENSION
     Route: 048
  5. CENTRUM CARDIO VITAMIN [Concomitant]
     Indication: VITAMIN SUPPLEMENTATION
     Route: 048
  6. LATANOPROST [Concomitant]
     Indication: GLAUCOMA
     Route: 047

REACTIONS (5)
  - EYE DISCHARGE [None]
  - EYE PRURITUS [None]
  - EYELID OEDEMA [None]
  - HYPERSENSITIVITY [None]
  - OCULAR HYPERAEMIA [None]
